FAERS Safety Report 17816248 (Version 2)
Quarter: 2020Q4

REPORT INFORMATION
  Report Type: Spontaneous
  Country: US (occurrence: US)
  Receive Date: 20200522
  Receipt Date: 20201026
  Transmission Date: 20210113
  Serious: No
  Sender: FDA-Public Use
  Company Number: US-SA-2020SA130709

PATIENT

DRUGS (1)
  1. XYZAL ALLERGY 24HR [Suspect]
     Active Substance: LEVOCETIRIZINE DIHYDROCHLORIDE
     Indication: HYPERSENSITIVITY
     Dosage: 5 MG, QD
     Route: 065

REACTIONS (6)
  - Throat irritation [Unknown]
  - Eye discharge [Unknown]
  - Rhinorrhoea [Unknown]
  - Eye swelling [Unknown]
  - Dry throat [Unknown]
  - Lacrimation increased [Unknown]
